FAERS Safety Report 9364499 (Version 1)
Quarter: 2013Q2

REPORT INFORMATION
  Report Type: Spontaneous
  Country: CH (occurrence: None)
  Receive Date: 20130619
  Receipt Date: 20130619
  Transmission Date: 20140414
  Serious: Yes (Hospitalization, Other)
  Sender: FDA-Public Use
  Company Number: CH-1198689

PATIENT
  Age: 23 Year
  Sex: Female
  Weight: 56 kg

DRUGS (1)
  1. TOBRADEX OPHTHALMIC SUSPENSION (TOBRADEX SUSPENSION) [Suspect]
     Dosage: 15-20 DROPS WITHIN ABOUT 4 MINUTES OPHTHALMIC
     Route: 050
     Dates: start: 20130530, end: 20130530

REACTIONS (8)
  - Syncope [None]
  - Hypotension [None]
  - Heart rate decreased [None]
  - Eye irritation [None]
  - Overdose [None]
  - Epilepsy [None]
  - Dizziness [None]
  - Muscle spasms [None]
